FAERS Safety Report 10467501 (Version 4)
Quarter: 2015Q3

REPORT INFORMATION
  Report Type: Spontaneous
  Country: US (occurrence: US)
  Receive Date: 20140922
  Receipt Date: 20150706
  Transmission Date: 20151125
  Serious: Yes (Hospitalization, Other)
  Sender: FDA-Public Use
  Company Number: US-009507513-1409USA009888

PATIENT
  Sex: Male
  Weight: 117.91 kg

DRUGS (2)
  1. JANUVIA [Suspect]
     Active Substance: SITAGLIPTIN PHOSPHATE
     Indication: TYPE 2 DIABETES MELLITUS
     Dosage: 100 MG, QD
     Route: 048
     Dates: start: 20110408, end: 20110825
  2. VICTOZA [Suspect]
     Active Substance: LIRAGLUTIDE
     Indication: TYPE 2 DIABETES MELLITUS
     Dosage: 1.2MG - 18MG/3ML DAILY
     Dates: start: 20110825, end: 20130829

REACTIONS (55)
  - Escherichia bacteraemia [Unknown]
  - Pancytopenia [Unknown]
  - Sepsis [Unknown]
  - Clostridium difficile colitis [Unknown]
  - Urinary retention [Unknown]
  - Prostatic specific antigen increased [Unknown]
  - Post procedural complication [Unknown]
  - Supraventricular tachycardia [Unknown]
  - Abscess drainage [Unknown]
  - Pancreatitis acute [Unknown]
  - Urinary tract obstruction [Unknown]
  - Upper gastrointestinal haemorrhage [Unknown]
  - Escherichia bacteraemia [Unknown]
  - Acute kidney injury [Unknown]
  - Bladder catheterisation [Unknown]
  - Therapeutic embolisation [Unknown]
  - Fungal test positive [Unknown]
  - Throat lesion [Unknown]
  - Influenza like illness [Unknown]
  - Escherichia bacteraemia [Unknown]
  - Escherichia bacteraemia [Unknown]
  - Abdominal abscess [Unknown]
  - Anastomotic haemorrhage [Unknown]
  - Device related infection [Unknown]
  - Malnutrition [Unknown]
  - Diabetes mellitus inadequate control [Recovering/Resolving]
  - Scrotal oedema [Recovered/Resolved]
  - Pancreaticoduodenectomy [Unknown]
  - Supraventricular tachycardia [Recovered/Resolved]
  - Hypokalaemia [Unknown]
  - Escherichia bacteraemia [Unknown]
  - Transurethral prostatectomy [Unknown]
  - Dysgeusia [Unknown]
  - Chronic kidney disease [Not Recovered/Not Resolved]
  - Polycystic liver disease [Unknown]
  - Hyperalbuminaemia [Unknown]
  - Benign prostatic hyperplasia [Unknown]
  - Hydrocele [Unknown]
  - Metabolic acidosis [Unknown]
  - Myalgia [Unknown]
  - Intraductal papillary-mucinous carcinoma of pancreas [Recovered/Resolved]
  - Pancreatic carcinoma metastatic [Recovered/Resolved]
  - Normochromic normocytic anaemia [Unknown]
  - Neutropenia [Unknown]
  - Escherichia sepsis [Unknown]
  - Metastases to liver [Unknown]
  - Haematuria [Unknown]
  - Traumatic renal injury [Unknown]
  - Hyponatraemia [Unknown]
  - Depression [Unknown]
  - Cholecystectomy [Unknown]
  - Clostridium difficile infection [Unknown]
  - Device difficult to use [Unknown]
  - Intervertebral disc protrusion [Unknown]
  - Arthralgia [Unknown]

NARRATIVE: CASE EVENT DATE: 201209
